FAERS Safety Report 23343118 (Version 2)
Quarter: 2024Q1

REPORT INFORMATION
  Report Type: Spontaneous
  Country: CH (occurrence: CH)
  Receive Date: 20231227
  Receipt Date: 20240111
  Transmission Date: 20240410
  Serious: No
  Sender: FDA-Public Use
  Company Number: CH-BIOVITRUM-2023-CH-021059

PATIENT
  Sex: Female

DRUGS (1)
  1. KINERET [Suspect]
     Active Substance: ANAKINRA
     Indication: Chondrocalcinosis
     Dosage: ONCE DAILY FOR 5 DAYS
     Route: 058

REACTIONS (1)
  - Off label use [Recovered/Resolved]
